FAERS Safety Report 11931441 (Version 2)
Quarter: 2016Q1

REPORT INFORMATION
  Report Type: Other
  Country: AU (occurrence: AU)
  Receive Date: 20160120
  Receipt Date: 20160208
  Transmission Date: 20160526
  Serious: Yes (Hospitalization)
  Sender: FDA-Public Use
  Company Number: AU-LABORATOIRE HRA PHARMA-1046660

PATIENT
  Sex: Female

DRUGS (1)
  1. METOPIRONE [Suspect]
     Active Substance: METYRAPONE
     Route: 048

REACTIONS (1)
  - Dysphagia [None]
